FAERS Safety Report 5258610-8 (Version None)
Quarter: 2007Q1

REPORT INFORMATION
  Report Type: 
  Country: None (occurrence: None)
  Receive Date: 20070305
  Receipt Date: 20070206
  Transmission Date: 20070707
  Serious: Yes (Death, Life-Threatening, Hospitalization, Other)
  Sender: FDA-Public Use
  Company Number: PAR_1224_2007

PATIENT
  Age: 83 Year
  Sex: Female

DRUGS (19)
  1. IBUPROFEN [Suspect]
     Dosage: DF
  2. MOXIFLOXACIN HCL [Suspect]
     Indication: CHOLECYSTITIS
     Dosage: DF UNK IV
     Route: 042
     Dates: start: 20070104, end: 20070106
  3. MOXIFLOXACIN HCL [Suspect]
     Indication: PERITONITIS
     Dosage: DF UNK IV
     Route: 042
     Dates: start: 20070104, end: 20070106
  4. SODIUM [Concomitant]
  5. RANITIDINE [Concomitant]
  6. HEPARIN [Concomitant]
  7. DICLOFENAC SODIUM [Concomitant]
  8. NITROGLYCERIN [Concomitant]
  9. SALBUTEMOL [Concomitant]
  10. UNASYN (AMPICILLIN W/SULBACTAM) [Concomitant]
  11. AMIODARONE HCL [Concomitant]
  12. OMEPRAZOLE [Concomitant]
  13. HYDROCORTISONE [Concomitant]
  14. FUROSEMIDE [Concomitant]
  15. SODIUM CHLORIDE [Concomitant]
  16. POTASSIUM CHLORIDE [Concomitant]
  17. YECTAFER [Concomitant]
  18. VENTOLIN [Concomitant]
  19. DOPAMINE HCL [Concomitant]

REACTIONS (9)
  - ATRIAL FLUTTER [None]
  - CARDIAC FAILURE ACUTE [None]
  - DUODENAL ULCER PERFORATION [None]
  - GASTROINTESTINAL HAEMORRHAGE [None]
  - HYPOTENSION [None]
  - INTESTINAL PERFORATION [None]
  - RALES [None]
  - SEPSIS [None]
  - TACHYPNOEA [None]
